FAERS Safety Report 24758642 (Version 1)
Quarter: 2024Q4

REPORT INFORMATION
  Report Type: Spontaneous
  Country: US (occurrence: US)
  Receive Date: 20241220
  Receipt Date: 20241220
  Transmission Date: 20250115
  Serious: No
  Sender: AUROBINDO
  Company Number: US-AUROBINDO-AUR-APL-2024-016184

PATIENT
  Age: 53 Year
  Sex: Female
  Weight: 102.05 kg

DRUGS (2)
  1. AMOXICILLIN [Suspect]
     Active Substance: AMOXICILLIN
     Indication: Otitis media
     Dosage: 1750 MILLIGRAM, TWO TIMES A DAY ( (TWICE A DAY WITH 12 HOURS GAP))
     Route: 048
     Dates: start: 20240324
  2. NEOMYCIN [Concomitant]
     Active Substance: NEOMYCIN
     Indication: Product used for unknown indication
     Dosage: UNK
     Route: 065

REACTIONS (3)
  - Pain in extremity [Unknown]
  - Oedema peripheral [Unknown]
  - Emergency care [Unknown]

NARRATIVE: CASE EVENT DATE: 20240326
